FAERS Safety Report 13045897 (Version 7)
Quarter: 2019Q4

REPORT INFORMATION
  Report Type: Report from Study
  Country: CA (occurrence: CA)
  Receive Date: 20161220
  Receipt Date: 20191016
  Transmission Date: 20200122
  Serious: Yes (Other)
  Sender: FDA-Public Use
  Company Number: CA-BRISTOL-MYERS SQUIBB COMPANY-BMS-2016-071009

PATIENT
  Age: 67 Year
  Sex: Female

DRUGS (5)
  1. ABATACEPT [Suspect]
     Active Substance: ABATACEPT
     Indication: RHEUMATOID ARTHRITIS
     Dosage: 750 MG, Q4WK
     Route: 042
     Dates: start: 20150213
  2. ROSUVASTATIN. [Concomitant]
     Active Substance: ROSUVASTATIN
     Indication: PRODUCT USED FOR UNKNOWN INDICATION
     Route: 065
  3. FOLIC ACID. [Concomitant]
     Active Substance: FOLIC ACID
     Indication: PRODUCT USED FOR UNKNOWN INDICATION
     Route: 065
  4. SYNTHROID [Concomitant]
     Active Substance: LEVOTHYROXINE SODIUM
     Indication: PRODUCT USED FOR UNKNOWN INDICATION
     Route: 065
  5. AMOXI                              /00249601/ [Concomitant]
     Indication: PRODUCT USED FOR UNKNOWN INDICATION
     Dosage: UNK
     Route: 065
     Dates: start: 20150213

REACTIONS (12)
  - Dermoid cyst [Unknown]
  - Sweat gland infection [Unknown]
  - Breast operation [Unknown]
  - Discomfort [Unknown]
  - Sweat gland disorder [Unknown]
  - Fatigue [Unknown]
  - Breast cyst [Unknown]
  - Ingrown hair [Unknown]
  - Herpes zoster [Unknown]
  - Vaginal haemorrhage [Unknown]
  - Infection [Unknown]
  - Acne [Unknown]

NARRATIVE: CASE EVENT DATE: 20160616
